FAERS Safety Report 20908908 (Version 1)
Quarter: 2022Q2

REPORT INFORMATION
  Report Type: Report from Study
  Country: CA (occurrence: CA)
  Receive Date: 20220603
  Receipt Date: 20220603
  Transmission Date: 20220721
  Serious: Yes (Other)
  Sender: FDA-Public Use
  Company Number: CA-CELGENE-CAN-20211001882

PATIENT
  Sex: Female

DRUGS (3)
  1. ONUREG [Suspect]
     Active Substance: AZACITIDINE
     Indication: Acute myeloid leukaemia
     Dosage: 300 MILLIGRAM
     Route: 048
     Dates: start: 20210920, end: 20220110
  2. ONUREG [Suspect]
     Active Substance: AZACITIDINE
     Dosage: 300 MILLIGRAM
     Route: 048
     Dates: start: 20211207
  3. ZOFRAN [Suspect]
     Active Substance: ONDANSETRON HYDROCHLORIDE
     Indication: Nausea
     Dosage: EVERY 6 HR PRN
     Route: 048
     Dates: start: 20211214

REACTIONS (3)
  - Hot flush [Recovered/Resolved]
  - Constipation [Recovered/Resolved]
  - Nausea [Recovered/Resolved]

NARRATIVE: CASE EVENT DATE: 20210101
